FAERS Safety Report 8331932-X (Version None)
Quarter: 2012Q2

REPORT INFORMATION
  Report Type: 
  Country: None (occurrence: None)
  Receive Date: 20120502
  Receipt Date: 20120420
  Transmission Date: 20120825
  Serious: Yes (Death, Hospitalization, Other)
  Sender: FDA-Public Use
  Company Number: SK-ELI_LILLY_AND_COMPANY-SK201204003783

PATIENT
  Age: 68 Year
  Sex: Female

DRUGS (4)
  1. PREDNISONE [Concomitant]
     Indication: PSORIATIC ARTHROPATHY
  2. METHOTREXATE                       /00113801/ [Concomitant]
     Indication: PSORIATIC ARTHROPATHY
  3. REMICADE [Concomitant]
     Indication: PSORIASIS
  4. FORTEO [Suspect]
     Indication: OSTEOPOROSIS
     Dosage: 20 UG, QD
     Route: 058
     Dates: start: 20100716

REACTIONS (7)
  - INFECTION [None]
  - COMA [None]
  - BRONCHOPNEUMONIA [None]
  - CORONARY ARTERY DISEASE [None]
  - CORONARY ARTERY OCCLUSION [None]
  - SEPSIS [None]
  - MYOCARDIAL INFARCTION [None]
